FAERS Safety Report 13427611 (Version 1)
Quarter: 2017Q2

REPORT INFORMATION
  Report Type: Spontaneous
  Country: US (occurrence: US)
  Receive Date: 20170411
  Receipt Date: 20170411
  Transmission Date: 20170830
  Serious: Yes (Hospitalization, Other)
  Sender: FDA-Public Use
  Company Number: US-009507513-1704USA001895

PATIENT
  Age: 58 Year
  Sex: Male
  Weight: 74.84 kg

DRUGS (4)
  1. LISINOPRIL. [Suspect]
     Active Substance: LISINOPRIL
     Indication: BLOOD PRESSURE MEASUREMENT
     Dosage: 20 MG, ONCE
     Dates: start: 2016, end: 201612
  2. HYDROCHLOROTHIAZIDE. [Suspect]
     Active Substance: HYDROCHLOROTHIAZIDE
     Indication: POLYURIA
     Dosage: 25 MG, ONCE
     Dates: start: 201609, end: 201612
  3. KLONOPIN [Concomitant]
     Active Substance: CLONAZEPAM
     Indication: BLOOD PRESSURE MEASUREMENT
     Dosage: 0.1MG AS NEEDED IF BOTTOM NUMBER IS OVER 100
     Dates: start: 20161215
  4. LOVASTATIN. [Concomitant]
     Active Substance: LOVASTATIN
     Indication: BLOOD CHOLESTEROL
     Dosage: 10 MG, ONCE,THINK ABOUT 2 MONTHS OR MORE

REACTIONS (10)
  - Blood glucose decreased [Unknown]
  - Blood pressure decreased [Unknown]
  - Syncope [Unknown]
  - Tremor [Recovered/Resolved]
  - Dizziness [Unknown]
  - Seizure [Recovered/Resolved]
  - Dehydration [Unknown]
  - Head injury [Unknown]
  - Foot fracture [Unknown]
  - Blood creatinine increased [Recovered/Resolved]

NARRATIVE: CASE EVENT DATE: 201612
